FAERS Safety Report 9646281 (Version 3)
Quarter: 2014Q3

REPORT INFORMATION
  Report Type: Report from Study
  Country: DE (occurrence: DE)
  Receive Date: 20131025
  Receipt Date: 20140922
  Transmission Date: 20150326
  Serious: Yes (Death, Hospitalization)
  Sender: FDA-Public Use
  Company Number: DE-ROCHE-1293776

PATIENT
  Age: 68 Year
  Sex: Male
  Weight: 79 kg

DRUGS (23)
  1. FLUOROURACIL. [Suspect]
     Active Substance: FLUOROURACIL
     Dosage: FOR 48 HOURS
     Route: 042
     Dates: start: 20131015, end: 20131017
  2. IRINOTECAN [Suspect]
     Active Substance: IRINOTECAN
     Route: 042
     Dates: start: 20130924, end: 20130924
  3. FOLINIC ACID [Concomitant]
     Active Substance: LEUCOVORIN
     Route: 065
     Dates: start: 20131015, end: 20131015
  4. IRINOTECAN [Suspect]
     Active Substance: IRINOTECAN
     Route: 042
     Dates: start: 20130910, end: 20130910
  5. FOLINIC ACID [Concomitant]
     Active Substance: LEUCOVORIN
     Route: 065
     Dates: start: 20130910, end: 20130910
  6. IRINOTECAN [Suspect]
     Active Substance: IRINOTECAN
     Indication: COLORECTAL CANCER METASTATIC
     Route: 042
     Dates: start: 20130827, end: 20130827
  7. DYNEXAN (GERMANY) [Concomitant]
     Route: 065
     Dates: start: 20130924
  8. FLUOROURACIL. [Suspect]
     Active Substance: FLUOROURACIL
     Dosage: FOR 48 HOURS
     Route: 042
     Dates: start: 20130910, end: 20130912
  9. TAMSULOSIN [Concomitant]
     Active Substance: TAMSULOSIN
     Indication: BENIGN PROSTATIC HYPERPLASIA
     Route: 048
     Dates: start: 20130827
  10. FOLINIC ACID [Concomitant]
     Active Substance: LEUCOVORIN
     Route: 065
     Dates: start: 20130924, end: 20130924
  11. BEVACIZUMAB [Suspect]
     Active Substance: BEVACIZUMAB
     Indication: COLORECTAL CANCER METASTATIC
     Route: 042
     Dates: start: 20130827
  12. FLUOROURACIL. [Suspect]
     Active Substance: FLUOROURACIL
     Route: 040
     Dates: start: 20131015, end: 20131015
  13. ENALAPRIL [Concomitant]
     Active Substance: ENALAPRIL
     Indication: HYPERTENSION
     Route: 048
     Dates: start: 20130827
  14. DEXAMETHASON [Concomitant]
     Active Substance: DEXAMETHASONE
     Route: 048
     Dates: start: 20130830
  15. FLUOROURACIL. [Suspect]
     Active Substance: FLUOROURACIL
     Indication: COLORECTAL CANCER METASTATIC
     Dosage: FOR 48 HOURS
     Route: 042
     Dates: start: 20130827, end: 20130829
  16. FLUOROURACIL. [Suspect]
     Active Substance: FLUOROURACIL
     Route: 040
     Dates: start: 20130827, end: 20130827
  17. FLUOROURACIL. [Suspect]
     Active Substance: FLUOROURACIL
     Route: 040
     Dates: start: 20130910, end: 20130910
  18. FLUOROURACIL. [Suspect]
     Active Substance: FLUOROURACIL
     Route: 040
     Dates: start: 20130924, end: 20130924
  19. TAMSULOSIN [Concomitant]
     Active Substance: TAMSULOSIN
     Route: 048
  20. FLUOROURACIL. [Suspect]
     Active Substance: FLUOROURACIL
     Dosage: FOR 48 HOURS
     Route: 042
     Dates: start: 20130924, end: 20130926
  21. IRINOTECAN [Suspect]
     Active Substance: IRINOTECAN
     Route: 042
     Dates: start: 20131015, end: 20131015
  22. SIMVASTATIN. [Concomitant]
     Active Substance: SIMVASTATIN
     Route: 048
     Dates: start: 20130819
  23. FOLINIC ACID [Concomitant]
     Active Substance: LEUCOVORIN
     Indication: COLORECTAL CANCER
     Route: 065
     Dates: start: 20130827, end: 20130827

REACTIONS (6)
  - Asthenia [Fatal]
  - Lung infection [Fatal]
  - Gait disturbance [Recovered/Resolved]
  - Decreased appetite [Recovered/Resolved]
  - Diarrhoea [Recovered/Resolved]
  - Malignant neoplasm progression [Fatal]

NARRATIVE: CASE EVENT DATE: 20130901
